FAERS Safety Report 7330698-X (Version None)
Quarter: 2011Q1

REPORT INFORMATION
  Report Type: 
  Country: None (occurrence: None)
  Receive Date: 20110304
  Receipt Date: 20091229
  Transmission Date: 20110831
  Serious: No
  Sender: FDA-Public Use
  Company Number: US-BAYER-200943915NA

PATIENT
  Sex: Female

DRUGS (1)
  1. MIRENA [Suspect]

REACTIONS (5)
  - ABDOMINAL DISTENSION [None]
  - MOOD ALTERED [None]
  - NAUSEA [None]
  - BREAST TENDERNESS [None]
  - FATIGUE [None]
